FAERS Safety Report 18682976 (Version 2)
Quarter: 2021Q1

REPORT INFORMATION
  Report Type: Spontaneous
  Country: JP (occurrence: JP)
  Receive Date: 20201230
  Receipt Date: 20210113
  Transmission Date: 20210419
  Serious: Yes (Hospitalization)
  Sender: FDA-Public Use
  Company Number: JP-MYLANLABS-2020M1104931

PATIENT
  Age: 55 Year
  Sex: Male
  Weight: 64.6 kg

DRUGS (1)
  1. MESALAZINE TABLETS 400MG [PFIZER] [Suspect]
     Active Substance: MESALAMINE
     Indication: COLITIS ULCERATIVE
     Dosage: 2400 MILLIGRAM
     Route: 048
     Dates: end: 201901

REACTIONS (2)
  - Product administration interrupted [Unknown]
  - Acute left ventricular failure [Recovered/Resolved with Sequelae]

NARRATIVE: CASE EVENT DATE: 20201212
